FAERS Safety Report 6737500 (Version 6)
Quarter: 2020Q3

REPORT INFORMATION
  Report Type: Report from Study
  Country: US (occurrence: US)
  Receive Date: 20080826
  Receipt Date: 20100429
  Transmission Date: 20201105
  Serious: Yes (Hospitalization)
  Sender: FDA-Public Use
  Company Number: US-PFIZER INC-2008066500

PATIENT
  Age: 59 Year
  Sex: Male
  Weight: 172 kg

DRUGS (12)
  1. SALBUTAMOL [Concomitant]
     Indication: WHEEZING
  2. COMPAZINE [Concomitant]
     Active Substance: PROCHLORPERAZINE MALEATE
     Indication: NAUSEA
     Dosage: 10 MG, EVERY  4?6 HRS, AS NEEDED
     Route: 048
     Dates: start: 20080807
  3. OXYCONTIN [Concomitant]
     Active Substance: OXYCODONE HYDROCHLORIDE
     Indication: PAIN
     Dosage: 10 MG, 2XDAY, AS NEEDED
     Route: 048
     Dates: start: 20080804
  4. PERCOCET [Concomitant]
     Active Substance: ACETAMINOPHEN\OXYCODONE HYDROCHLORIDE
     Indication: PAIN
     Dosage: 5?325 MG 1?2 TAB, EVERY 4 HRS, AS NEEDED
     Route: 048
     Dates: start: 20080724
  5. NORVASC [Concomitant]
     Active Substance: AMLODIPINE BESYLATE
     Dosage: 5 MG, 1X/DAY
     Route: 048
     Dates: start: 20080721
  6. AVALIDE [Concomitant]
     Active Substance: HYDROCHLOROTHIAZIDE\IRBESARTAN
     Dosage: 300 MG?25 MG, 1XDAY
     Route: 048
     Dates: start: 20080724
  7. SUNITINIB MALATE. [Suspect]
     Active Substance: SUNITINIB MALATE
     Indication: RENAL CELL CARCINOMA
     Dosage: 37.5 MG, 1X/DAY
     Route: 048
     Dates: start: 20080724, end: 20080805
  8. TREMELIMUMAB. [Suspect]
     Active Substance: TREMELIMUMAB
     Indication: RENAL CELL CARCINOMA
     Dosage: 2565 MG, EVERY 12 WEEKS
     Route: 042
     Dates: start: 20080724, end: 20080724
  9. COMPAZINE [Concomitant]
     Active Substance: PROCHLORPERAZINE MALEATE
     Indication: VOMITING
  10. SALBUTAMOL [Concomitant]
     Indication: DYSPNOEA
     Dosage: 2 PUFFS, EVERY 4?6 HRS, AS NEEDED
     Route: 055
     Dates: start: 20030212
  11. FLONASE [Concomitant]
     Active Substance: FLUTICASONE PROPIONATE
     Dosage: 1 PUFF PER NOSTRIL, AT BEDTIME
     Route: 045
     Dates: start: 20030212
  12. FLOVENT [Concomitant]
     Active Substance: FLUTICASONE PROPIONATE
     Dosage: 2 PUFFS, 2XDAY
     Route: 055
     Dates: start: 20030212

REACTIONS (4)
  - Confusional state [Recovered/Resolved]
  - Dyspnoea [Recovered/Resolved]
  - Pyrexia [Recovered/Resolved]
  - Oedema peripheral [Recovered/Resolved]

NARRATIVE: CASE EVENT DATE: 20080805
